FAERS Safety Report 10627001 (Version 2)
Quarter: 2014Q4

REPORT INFORMATION
  Report Type: Report from Study
  Country: US (occurrence: US)
  Receive Date: 20141204
  Receipt Date: 20141204
  Transmission Date: 20150529
  Serious: Yes (Hospitalization)
  Sender: FDA-Public Use
  Company Number: US-JNJFOC-20141017929

PATIENT
  Age: 55 Year
  Sex: Female
  Weight: 72.6 kg

DRUGS (11)
  1. CLARITIN [Concomitant]
     Active Substance: LORATADINE
  2. IMBRUVICA [Suspect]
     Active Substance: IBRUTINIB
     Indication: CHRONIC LYMPHOCYTIC LEUKAEMIA
     Route: 048
     Dates: start: 20140826
  3. IMBRUVICA [Suspect]
     Active Substance: IBRUTINIB
     Indication: LEUKAEMIA
     Route: 048
     Dates: start: 20140320, end: 20140722
  4. MUCINEX D [Concomitant]
     Active Substance: GUAIFENESIN\PSEUDOEPHEDRINE HYDROCHLORIDE
  5. ANTIDEPRESSANTS [Concomitant]
     Active Substance: UNSPECIFIED INGREDIENT
     Indication: DEPRESSION
  6. IMBRUVICA [Suspect]
     Active Substance: IBRUTINIB
     Indication: LEUKAEMIA
     Route: 048
     Dates: start: 20140826
  7. IMMUNOGLOBULIN G HUMAN [Concomitant]
     Active Substance: HUMAN IMMUNOGLOBULIN G
     Route: 042
  8. IMBRUVICA [Suspect]
     Active Substance: IBRUTINIB
     Indication: CHRONIC LYMPHOCYTIC LEUKAEMIA
     Route: 048
     Dates: start: 20140320, end: 20140722
  9. ZOFRAN [Concomitant]
     Active Substance: ONDANSETRON HYDROCHLORIDE
  10. CELEXA [Concomitant]
     Active Substance: CITALOPRAM HYDROBROMIDE
  11. KCL [Concomitant]
     Active Substance: POTASSIUM CHLORIDE

REACTIONS (13)
  - Nausea [Recovered/Resolved]
  - Pneumonia pneumococcal [Recovered/Resolved]
  - Drug dose omission [Recovered/Resolved]
  - Leukopenia [Unknown]
  - Oedema [Recovered/Resolved]
  - Fatigue [Recovered/Resolved]
  - Upper respiratory tract infection [Recovered/Resolved]
  - Arthralgia [Recovered/Resolved]
  - Hypogammaglobulinaemia [Unknown]
  - Sepsis [Recovered/Resolved]
  - Feeling abnormal [Recovered/Resolved]
  - Musculoskeletal pain [Recovered/Resolved]
  - Neuropathy peripheral [Recovered/Resolved]

NARRATIVE: CASE EVENT DATE: 2014
